FAERS Safety Report 4428407-7 (Version None)
Quarter: 2004Q3

REPORT INFORMATION
  Report Type: 
  Country: None (occurrence: None)
  Receive Date: 20040818
  Receipt Date: 20040809
  Transmission Date: 20050211
  Serious: Yes (Hospitalization)
  Sender: FDA-Public Use
  Company Number: 200412982FR

PATIENT
  Age: 80 Year
  Sex: Female

DRUGS (6)
  1. LOVENOX [Suspect]
     Route: 058
     Dates: start: 20040515, end: 20040603
  2. SINTROM [Suspect]
     Route: 048
     Dates: start: 20040525, end: 20040603
  3. TRIFLUCAN [Suspect]
     Route: 048
     Dates: start: 20040526, end: 20040603
  4. BISOPROLOL FUMARATE [Concomitant]
     Route: 048
  5. LASIX [Concomitant]
  6. ADANCOR [Concomitant]
     Route: 048

REACTIONS (6)
  - ANAEMIA [None]
  - HAEMATOMA [None]
  - INTERNATIONAL NORMALISED RATIO DECREASED [None]
  - INTERNATIONAL NORMALISED RATIO INCREASED [None]
  - PROTHROMBIN LEVEL DECREASED [None]
  - SHOCK HAEMORRHAGIC [None]
